FAERS Safety Report 23160578 (Version 2)
Quarter: 2023Q4

REPORT INFORMATION
  Report Type: Report from Study
  Country: JP (occurrence: JP)
  Receive Date: 20231108
  Receipt Date: 20231108
  Transmission Date: 20240110
  Serious: Yes (Hospitalization)
  Sender: FDA-Public Use
  Company Number: JP-ALXN-A202107615AA

PATIENT
  Age: 1 Year
  Sex: Female
  Weight: 7.97 kg

DRUGS (6)
  1. STRENSIQ [Suspect]
     Active Substance: ASFOTASE ALFA
     Indication: Hypophosphatasia
     Dosage: 2 MG/KG, TIW
     Route: 058
     Dates: start: 20180409
  2. STRENSIQ [Suspect]
     Active Substance: ASFOTASE ALFA
     Dosage: 2 MILLIGRAM/KILOGRAM, TIW
     Route: 065
     Dates: start: 20190126
  3. LASIX [Concomitant]
     Active Substance: FUROSEMIDE
     Indication: Product used for unknown indication
     Dosage: 0.33 MG/KG, TID
     Route: 048
     Dates: end: 20190509
  4. SPIRONOLACTONE [Concomitant]
     Active Substance: SPIRONOLACTONE
     Indication: Product used for unknown indication
     Dosage: 0.33 MG/KG, TID
     Route: 048
     Dates: end: 20190509
  5. TRACLEER                           /01587701/ [Concomitant]
     Indication: Product used for unknown indication
     Dosage: 1 MG/KG, BID
     Route: 048
  6. TRACLEER                           /01587701/ [Concomitant]
     Indication: Asthma
     Dosage: 1 MG/KG, TID
     Route: 048

REACTIONS (7)
  - Exanthema subitum [Unknown]
  - Bronchitis [Recovered/Resolved]
  - Febrile convulsion [Recovered/Resolved]
  - Pharyngitis [Recovered/Resolved]
  - Vomiting [Recovered/Resolved]
  - Tooth loss [Not Recovered/Not Resolved]
  - Asthma [Unknown]

NARRATIVE: CASE EVENT DATE: 20190529
